FAERS Safety Report 7375174-3 (Version None)
Quarter: 2011Q1

REPORT INFORMATION
  Report Type: 
  Country: None (occurrence: None)
  Receive Date: 20110325
  Receipt Date: 20110322
  Transmission Date: 20110831
  Serious: Yes (Other)
  Sender: FDA-Public Use
  Company Number: JP-ROCHE-765464

PATIENT
  Age: 44 Year
  Sex: Female

DRUGS (4)
  1. METHOTREXATE [Concomitant]
     Dosage: DOSE FORM: UNCERTAINTY, DOSAGE IS UNCERTAIN.
     Route: 065
  2. CYCLOSPORINE [Concomitant]
     Dosage: DOSE FORM: UNCERTANITY
     Route: 065
  3. METHYLPREDNISOLONE [Suspect]
     Indication: ACUTE GRAFT VERSUS HOST DISEASE
     Dosage: DOSE FORM: UNCERTAINTY
     Route: 065
  4. CELLCEPT [Suspect]
     Indication: PROPHYLAXIS AGAINST GRAFT VERSUS HOST DISEASE
     Route: 048

REACTIONS (1)
  - BRACHIAL PLEXOPATHY [None]
